FAERS Safety Report 6292538-X (Version None)
Quarter: 2009Q3

REPORT INFORMATION
  Report Type: 
  Country: None (occurrence: None)
  Receive Date: 20090731
  Receipt Date: 20090723
  Transmission Date: 20100115
  Serious: Yes (Hospitalization)
  Sender: FDA-Public Use
  Company Number: CA-ASTRAZENECA-2009UW21179

PATIENT
  Age: 56 Year
  Sex: Female

DRUGS (6)
  1. TENORMIN [Suspect]
     Indication: HYPERTENSION
     Route: 048
     Dates: end: 20090621
  2. TENORMIN [Suspect]
     Route: 048
  3. TAPAZOLE [Concomitant]
     Indication: HYPERTHYROIDISM
  4. HYDROCHLOROTHIAZIDE [Concomitant]
     Indication: HYPERTENSION
  5. METOPROLOL TARTRATE [Concomitant]
     Indication: HYPERTENSION
     Dates: start: 20090721
  6. SPIRONOLACTONE [Concomitant]
     Indication: HYPERTENSION
     Dates: start: 20090721

REACTIONS (5)
  - BLOOD POTASSIUM DECREASED [None]
  - BLOOD PRESSURE INADEQUATELY CONTROLLED [None]
  - HYPERTHYROIDISM [None]
  - PALPITATIONS [None]
  - TINNITUS [None]
